FAERS Safety Report 21453426 (Version 1)
Quarter: 2022Q4

REPORT INFORMATION
  Report Type: Spontaneous
  Country: JP (occurrence: JP)
  Receive Date: 20221013
  Receipt Date: 20221013
  Transmission Date: 20230112
  Serious: Yes (Other)
  Sender: FDA-Public Use
  Company Number: JP-TEVA-2022-JP-2816276

PATIENT
  Age: 46 Year
  Sex: Male

DRUGS (11)
  1. PREDNISOLONE [Suspect]
     Active Substance: PREDNISOLONE
     Indication: Pneumonitis
     Dosage: 60 MILLIGRAM DAILY; 1 MG/KG/DAY
     Route: 065
  2. PREDNISOLONE [Suspect]
     Active Substance: PREDNISOLONE
     Indication: Hepatitis
     Dosage: 20 MILLIGRAM DAILY;
     Route: 065
  3. PEMBROLIZUMAB [Suspect]
     Active Substance: PEMBROLIZUMAB
     Indication: Lung adenocarcinoma stage IV
     Route: 050
  4. PEMBROLIZUMAB [Suspect]
     Active Substance: PEMBROLIZUMAB
     Indication: Metastases to bone
  5. URSODIOL [Concomitant]
     Active Substance: URSODIOL
     Indication: Product used for unknown indication
     Dosage: 150 MILLIGRAM DAILY;
     Route: 065
  6. URSODIOL [Concomitant]
     Active Substance: URSODIOL
     Dosage: 300 MILLIGRAM DAILY;
     Route: 065
  7. CISPLATIN [Concomitant]
     Active Substance: CISPLATIN
     Indication: Lung adenocarcinoma stage IV
     Route: 050
  8. CISPLATIN [Concomitant]
     Active Substance: CISPLATIN
     Indication: Metastases to bone
  9. PEMETREXED [Concomitant]
     Active Substance: PEMETREXED
     Indication: Lung adenocarcinoma stage IV
     Route: 050
  10. PEMETREXED [Concomitant]
     Active Substance: PEMETREXED
     Indication: Metastases to bone
  11. SULFAMETHOXAZOLE\TRIMETHOPRIM [Concomitant]
     Active Substance: SULFAMETHOXAZOLE\TRIMETHOPRIM
     Indication: Antibiotic prophylaxis
     Dosage: 400MG/80MG
     Route: 065

REACTIONS (3)
  - Pneumonitis [Unknown]
  - Drug-induced liver injury [Recovering/Resolving]
  - Rebound effect [Recovering/Resolving]
